FAERS Safety Report 9693797 (Version 4)
Quarter: 2015Q3

REPORT INFORMATION
  Report Type: Report from Study
  Country: US (occurrence: US)
  Receive Date: 20131118
  Receipt Date: 20150817
  Transmission Date: 20151125
  Serious: Yes (Other)
  Sender: FDA-Public Use
  Company Number: US-GILEAD-2013-0088003

PATIENT
  Age: 39 Year
  Sex: Female
  Weight: 157 kg

DRUGS (14)
  1. ADEMPAS [Concomitant]
     Active Substance: RIOCIGUAT
  2. ILOPROST [Concomitant]
     Active Substance: ILOPROST
     Dosage: UNK
  3. REMODULIN [Concomitant]
     Active Substance: TREPROSTINIL
     Dosage: UNK
  4. FLOLAN [Suspect]
     Active Substance: EPOPROSTENOL SODIUM
     Dosage: 57 NG/KG/MIN
     Dates: start: 20050309
  5. FLOLAN [Suspect]
     Active Substance: EPOPROSTENOL SODIUM
     Dosage: 35/NG/KG/MIN
     Route: 042
     Dates: start: 20050222
  6. FLOLAN [Suspect]
     Active Substance: EPOPROSTENOL SODIUM
     Dosage: UNK
     Dates: start: 2005, end: 201502
  7. IMODIUM [Concomitant]
     Active Substance: LOPERAMIDE HYDROCHLORIDE
  8. TRACLEER [Concomitant]
     Active Substance: BOSENTAN
     Dosage: UNK
  9. THELIN [Concomitant]
     Dosage: UNK
  10. FLOLAN [Suspect]
     Active Substance: EPOPROSTENOL SODIUM
     Indication: PULMONARY ARTERIAL HYPERTENSION
     Dosage: 40 MG/KG/MIN
     Route: 042
     Dates: start: 20050222
  11. FLOLAN [Suspect]
     Active Substance: EPOPROSTENOL SODIUM
     Dosage: UNK
     Route: 042
     Dates: start: 20050308
  12. LASIX [Concomitant]
     Active Substance: FUROSEMIDE
  13. AMBRISENTAN [Suspect]
     Active Substance: AMBRISENTAN
     Indication: PRODUCT USED FOR UNKNOWN INDICATION
     Dosage: 10 MG, QD
     Route: 065
     Dates: start: 20130617, end: 2013
  14. REVATIO [Suspect]
     Active Substance: SILDENAFIL CITRATE
     Indication: PRODUCT USED FOR UNKNOWN INDICATION
     Route: 065

REACTIONS (2)
  - Oedema peripheral [Not Recovered/Not Resolved]
  - Fluid retention [Not Recovered/Not Resolved]
